APPROVED DRUG PRODUCT: METRONIDAZOLE IN PLASTIC CONTAINER
Active Ingredient: METRONIDAZOLE
Strength: 500MG/100ML
Dosage Form/Route: INJECTABLE;INJECTION
Application: A212435 | Product #001 | TE Code: AP
Applicant: GLAND PHARMA LTD
Approved: Aug 3, 2020 | RLD: No | RS: No | Type: RX